FAERS Safety Report 9217584 (Version 3)
Quarter: 2014Q1

REPORT INFORMATION
  Report Type: Report from Study
  Country: BR (occurrence: BR)
  Receive Date: 20130408
  Receipt Date: 20140325
  Transmission Date: 20141002
  Serious: Yes (Hospitalization, Other)
  Sender: FDA-Public Use
  Company Number: BR-ROCHE-1211260

PATIENT
  Age: 50 Year
  Sex: Female
  Weight: 78 kg

DRUGS (5)
  1. MABTHERA [Suspect]
     Indication: RHEUMATOID ARTHRITIS
     Dosage: LATEST INFUSION WAS ON: 20/AUG/2013.
     Route: 065
     Dates: start: 20120802
  2. DICLOFENAC SODIUM [Suspect]
     Indication: PRODUCT USED FOR UNKNOWN INDICATION
     Route: 065
  3. PREDNISONE [Concomitant]
  4. VIMOVO [Concomitant]
  5. METROZOLE [Concomitant]

REACTIONS (6)
  - Arthropathy [Recovered/Resolved]
  - Hip arthroplasty [Recovering/Resolving]
  - Atrophy [Not Recovered/Not Resolved]
  - Erythema [Not Recovered/Not Resolved]
  - Hypersensitivity [Unknown]
  - Goitre [Not Recovered/Not Resolved]
